FAERS Safety Report 5758622-1 (Version None)
Quarter: 2008Q2

REPORT INFORMATION
  Report Type: 
  Country: None (occurrence: None)
  Receive Date: 20080604
  Receipt Date: 20080530
  Transmission Date: 20081010
  Serious: Yes (Other)
  Sender: FDA-Public Use
  Company Number: US-AVENTIS-200813335US

PATIENT

DRUGS (1)
  1. TAXOTERE [Suspect]
     Dosage: DOSE: UNK
     Dates: start: 20080530, end: 20080530

REACTIONS (1)
  - RESPIRATORY ARREST [None]
